FAERS Safety Report 17548703 (Version 1)
Quarter: 2020Q1

REPORT INFORMATION
  Report Type: Spontaneous
  Country: GB (occurrence: GB)
  Receive Date: 20200317
  Receipt Date: 20200317
  Transmission Date: 20200409
  Serious: Yes (Disabling, Other)
  Sender: FDA-Public Use
  Company Number: GB-TEVA-2020-GB-1200091

PATIENT
  Age: 87 Year
  Sex: Male

DRUGS (6)
  1. CLOPIDOGREL [Suspect]
     Active Substance: CLOPIDOGREL BISULFATE
     Route: 065
  2. BISOPROLOL [Concomitant]
     Active Substance: BISOPROLOL
  3. APIXABAN [Suspect]
     Active Substance: APIXABAN
     Route: 065
  4. OMEPRAZOLE. [Concomitant]
     Active Substance: OMEPRAZOLE
  5. RAMIPRIL. [Concomitant]
     Active Substance: RAMIPRIL
  6. ISOSORBIDE. [Concomitant]
     Active Substance: ISOSORBIDE

REACTIONS (11)
  - Dehydration [Unknown]
  - Facial paralysis [Unknown]
  - Bleeding time prolonged [Unknown]
  - Contusion [Unknown]
  - Hemiparesis [Unknown]
  - Constipation [Unknown]
  - Contraindicated product administered [Unknown]
  - Cerebrovascular accident [Unknown]
  - Ischaemia [Unknown]
  - Hypotonia [Unknown]
  - Dysarthria [Unknown]
